FAERS Safety Report 8022068-6 (Version None)
Quarter: 2012Q1

REPORT INFORMATION
  Report Type: 
  Country: None (occurrence: None)
  Receive Date: 20120104
  Receipt Date: 20111229
  Transmission Date: 20120608
  Serious: Yes (Death, Hospitalization, Other)
  Sender: FDA-Public Use
  Company Number: US-CELGENEUS-163-21880-11091973

PATIENT
  Sex: Female

DRUGS (8)
  1. FLUCONAZOLE [Concomitant]
     Indication: ANTIFUNGAL PROPHYLAXIS
     Dosage: 400 MILLIGRAM
     Route: 065
     Dates: start: 20110911, end: 20110925
  2. REVLIMID [Suspect]
     Indication: ADULT T-CELL LYMPHOMA/LEUKAEMIA
     Dosage: 25 MILLIGRAM
     Route: 048
     Dates: start: 20110808, end: 20110923
  3. MORPHINE [Concomitant]
     Indication: PAIN
     Dosage: 2 MILLIGRAM
     Route: 041
     Dates: start: 20110924, end: 20110925
  4. ONDANSETRON [Concomitant]
     Indication: NAUSEA
     Dosage: 8 MILLIGRAM
     Route: 041
     Dates: start: 20110909, end: 20110925
  5. BACTRIM DS [Concomitant]
     Route: 065
     Dates: start: 20110909, end: 20110925
  6. ERTAPENEM [Concomitant]
     Indication: SEPSIS
     Dosage: 1000 MILLIGRAM
     Route: 041
     Dates: start: 20110912, end: 20110923
  7. PANTOPRAZOLE [Concomitant]
     Indication: PROPHYLAXIS AGAINST GASTROINTESTINAL ULCER
     Dosage: 40 MILLIGRAM
     Route: 041
     Dates: start: 20110911, end: 20110925
  8. OXYCODONE HCL [Concomitant]
     Indication: PAIN
     Dosage: 5-10MG
     Route: 065
     Dates: start: 20110908, end: 20110925

REACTIONS (3)
  - SEPSIS [None]
  - THROMBOCYTOPENIA [None]
  - ADULT T-CELL LYMPHOMA/LEUKAEMIA [None]
